FAERS Safety Report 26010213 (Version 1)
Quarter: 2025Q4

REPORT INFORMATION
  Report Type: Spontaneous
  Country: US (occurrence: US)
  Receive Date: 20251107
  Receipt Date: 20251107
  Transmission Date: 20260117
  Serious: Yes (Other)
  Sender: UCB
  Company Number: 2024007184

PATIENT
  Age: 52 Year
  Weight: 71.2 kg

DRUGS (2)
  1. CIMZIA [Suspect]
     Active Substance: CERTOLIZUMAB PEGOL
     Indication: Rheumatoid arthritis
     Dosage: 400 MILLIGRAM, EV 2 WEEKS(QOW)
  2. CIMZIA [Suspect]
     Active Substance: CERTOLIZUMAB PEGOL
     Dosage: 200 MILLIGRAM, EV 2 WEEKS(QOW)

REACTIONS (7)
  - Urinary tract infection [Unknown]
  - Surgery [Unknown]
  - Illness [Unknown]
  - Myalgia [Unknown]
  - Arthralgia [Unknown]
  - Product availability issue [Unknown]
  - Therapy interrupted [Unknown]
